FAERS Safety Report 22765629 (Version 6)
Quarter: 2023Q4

REPORT INFORMATION
  Report Type: Report from Study
  Country: US (occurrence: US)
  Receive Date: 20230731
  Receipt Date: 20231018
  Transmission Date: 20240110
  Serious: No
  Sender: FDA-Public Use
  Company Number: US-002147023-NVSC2023US167064

PATIENT
  Sex: Female

DRUGS (3)
  1. KISQALI [Suspect]
     Active Substance: RIBOCICLIB
     Indication: Product used for unknown indication
     Dosage: UNK
     Route: 065
  2. KISQALI [Suspect]
     Active Substance: RIBOCICLIB
     Dosage: UNK, FIRST CYCLE
     Route: 065
  3. KISQALI [Suspect]
     Active Substance: RIBOCICLIB
     Dosage: UNK, SECOND CYCLE
     Route: 065

REACTIONS (6)
  - White blood cell count decreased [Unknown]
  - Rash [Unknown]
  - Alopecia [Unknown]
  - Madarosis [Unknown]
  - Hepatic enzyme increased [Unknown]
  - Taste disorder [Unknown]
